FAERS Safety Report 13943629 (Version 2)
Quarter: 2017Q4

REPORT INFORMATION
  Report Type: Report from Study
  Country: None (occurrence: US)
  Receive Date: 20170907
  Receipt Date: 20171123
  Transmission Date: 20180320
  Serious: Yes (Hospitalization, Other)
  Sender: FDA-Public Use
  Company Number: US-ABBVIE-17K-163-1977273-00

PATIENT
  Sex: Female
  Weight: 72.64 kg

DRUGS (3)
  1. SIMVASTATIN. [Concomitant]
     Active Substance: SIMVASTATIN
     Indication: HYPERCHOLESTEROLAEMIA
  2. HUMIRA [Suspect]
     Active Substance: ADALIMUMAB
     Indication: PSORIASIS
     Route: 058
     Dates: start: 2012
  3. LISINOPRIL. [Concomitant]
     Active Substance: LISINOPRIL
     Indication: HYPERTENSION

REACTIONS (18)
  - Mucous stools [Not Recovered/Not Resolved]
  - Weight increased [Not Recovered/Not Resolved]
  - Cataract operation complication [Unknown]
  - Abdominal pain upper [Unknown]
  - Eye irritation [Recovered/Resolved]
  - Fall [Unknown]
  - Eructation [Unknown]
  - Cataract [Recovered/Resolved]
  - Cough [Not Recovered/Not Resolved]
  - Alopecia [Unknown]
  - Asthenia [Not Recovered/Not Resolved]
  - Flatulence [Unknown]
  - Peripheral swelling [Not Recovered/Not Resolved]
  - Drug effect incomplete [Not Recovered/Not Resolved]
  - Visual impairment [Unknown]
  - Pain in extremity [Unknown]
  - Foot fracture [Unknown]
  - Secretion discharge [Not Recovered/Not Resolved]

NARRATIVE: CASE EVENT DATE: 2016
